FAERS Safety Report 9437199 (Version 2)
Quarter: 2013Q3

REPORT INFORMATION
  Report Type: Spontaneous
  Country: US (occurrence: US)
  Receive Date: 20130802
  Receipt Date: 20130809
  Transmission Date: 20140515
  Serious: Yes (Hospitalization, Other)
  Sender: FDA-Public Use
  Company Number: PHEH2013US015640

PATIENT
  Age: 69 Year
  Sex: Male

DRUGS (7)
  1. DIOVAN HCT [Suspect]
     Indication: HYPERTENSION
     Dosage: 160/12.5 MG, DAILY
     Route: 048
     Dates: end: 20130630
  2. LOVAZA [Concomitant]
     Dosage: 2 G , DAILY
  3. NEXIUM//ESOMEPRAZOLE MAGNESIUM [Concomitant]
     Indication: GASTROOESOPHAGEAL REFLUX DISEASE
     Dosage: 40 MG, DAILY
     Route: 048
  4. METAMUCIL//PSYLLIUM HYDROPHILIC MUCILLOID [Concomitant]
     Dosage: 2 DF, DAILY
  5. CORIZAN [Concomitant]
     Dosage: 1 MG, BID
     Route: 048
  6. CRESTOR [Concomitant]
     Indication: BLOOD CHOLESTEROL INCREASED
     Dosage: 10 MG, QD (AT NOON)
     Route: 048
  7. BABY ASPIRIN [Concomitant]
     Indication: PROPHYLAXIS
     Dosage: 81 MG, DAILY
     Route: 048

REACTIONS (6)
  - Supraventricular tachycardia [Recovered/Resolved]
  - Palpitations [Unknown]
  - Blood potassium decreased [Recovered/Resolved]
  - Conduction disorder [Unknown]
  - Hypertension [Unknown]
  - Blood glucose increased [Unknown]
